FAERS Safety Report 17128790 (Version 1)
Quarter: 2019Q4

REPORT INFORMATION
  Report Type: Spontaneous
  Country: US (occurrence: US)
  Receive Date: 20191206
  Receipt Date: 20191206
  Transmission Date: 20200122
  Serious: Yes (Other)
  Sender: FDA-Public Use
  Company Number: None

PATIENT
  Age: 66 Year
  Sex: Female
  Weight: 65.48 kg

DRUGS (9)
  1. ALOE VERA JUICE [Concomitant]
  2. GINGER. [Concomitant]
     Active Substance: GINGER
  3. IBUPROFEN. [Concomitant]
     Active Substance: IBUPROFEN
  4. RHUBARB. [Concomitant]
     Active Substance: RHUBARB
  5. ARIMIDEX [Concomitant]
     Active Substance: ANASTROZOLE
  6. IBRANCE [Suspect]
     Active Substance: PALBOCICLIB
     Indication: BREAST CANCER
     Dosage: ?          OTHER FREQUENCY:DAILY X 21 DAYS;?
     Route: 048
     Dates: start: 20190110
  7. ALENDRONATE [Concomitant]
     Active Substance: ALENDRONATE SODIUM
  8. ATORVASTATIN [Concomitant]
     Active Substance: ATORVASTATIN
  9. CRANBERRY. [Concomitant]
     Active Substance: CRANBERRY

REACTIONS (1)
  - Disease progression [None]
